FAERS Safety Report 13242310 (Version 2)
Quarter: 2017Q2

REPORT INFORMATION
  Report Type: Report from Study
  Country: US (occurrence: US)
  Receive Date: 20170216
  Receipt Date: 20170410
  Transmission Date: 20170830
  Serious: Yes (Death, Hospitalization)
  Sender: FDA-Public Use
  Company Number: US-HLSUS-2017-US-000055

PATIENT
  Age: 61 Year
  Sex: Male
  Weight: 75.29 kg

DRUGS (6)
  1. HALOPERIDOL. [Concomitant]
     Active Substance: HALOPERIDOL
     Indication: PSYCHOTIC DISORDER
     Dosage: 5 MG BID/PRN
     Route: 030
     Dates: start: 20170102, end: 20170105
  2. ZIPRASIDONE. [Concomitant]
     Active Substance: ZIPRASIDONE
     Indication: PSYCHOTIC DISORDER
     Dosage: 40 MG BID
     Route: 048
     Dates: start: 20170108, end: 20170110
  3. LORAZEPAM. [Concomitant]
     Active Substance: LORAZEPAM
     Indication: AGITATION
     Dosage: 1 MG TID/PRN
     Route: 048
     Dates: start: 20170102, end: 20170105
  4. BUPROPION. [Concomitant]
     Active Substance: BUPROPION
     Indication: DEPRESSION
     Dosage: 200 MG BID
     Route: 048
     Dates: start: 20161228, end: 20170105
  5. CLOZAPINE. [Suspect]
     Active Substance: CLOZAPINE
     Indication: PSYCHOTIC DISORDER
     Dates: end: 20170103
  6. TEMAZEPAM. [Concomitant]
     Active Substance: TEMAZEPAM
     Indication: INSOMNIA
     Dosage: 15 MG HS/PRN
     Route: 048
     Dates: start: 20161223, end: 20170105

REACTIONS (2)
  - White blood cell count increased [Unknown]
  - Cardiac disorder [Fatal]

NARRATIVE: CASE EVENT DATE: 20170109
